FAERS Safety Report 20035419 (Version 1)
Quarter: 2021Q4

REPORT INFORMATION
  Report Type: Report from Study
  Country: US (occurrence: US)
  Receive Date: 20211104
  Receipt Date: 20211104
  Transmission Date: 20220304
  Serious: No
  Sender: FDA-Public Use
  Company Number: US-INCYTE CORPORATION-2021IN009240

PATIENT

DRUGS (3)
  1. JAKAFI [Suspect]
     Active Substance: RUXOLITINIB
     Indication: Myelofibrosis
     Dosage: 10 MILLIGRAM, BID
     Route: 048
     Dates: start: 20170823
  2. JAKAFI [Suspect]
     Active Substance: RUXOLITINIB
     Dosage: 5 MILLIGRAM, QD
     Route: 048
     Dates: start: 20170823
  3. JAKAFI [Suspect]
     Active Substance: RUXOLITINIB
     Dosage: EXCEPT ON SATURDAY AND SUNDAY TAKE 10MG (5MG TAB X 2 TAB) QAM, 5MG QPM
     Route: 048
     Dates: start: 20211013

REACTIONS (2)
  - Product availability issue [Unknown]
  - Product distribution issue [Unknown]
